FAERS Safety Report 5165392-7 (Version None)
Quarter: 2006Q4

REPORT INFORMATION
  Report Type: 
  Country: None (occurrence: None)
  Receive Date: 20061206
  Receipt Date: 20061108
  Transmission Date: 20070319
  Serious: Yes (Hospitalization)
  Sender: FDA-Public Use
  Company Number: PHBS2006ZA17324

PATIENT
  Age: 40 Year
  Sex: Female

DRUGS (4)
  1. FEMARA [Suspect]
     Indication: BREAST CANCER FEMALE
     Route: 048
  2. ANTIASTHMATICS,INHALANTS [Concomitant]
  3. ACE INHIBITOR NOS [Concomitant]
  4. ATACAND [Concomitant]

REACTIONS (34)
  - ALANINE AMINOTRANSFERASE INCREASED [None]
  - ANOREXIA [None]
  - ASPARTATE AMINOTRANSFERASE INCREASED [None]
  - BLOOD ELECTROLYTES ABNORMAL [None]
  - BLOOD IMMUNOGLOBULIN E INCREASED [None]
  - BLOOD LACTATE DEHYDROGENASE INCREASED [None]
  - BLOOD PH INCREASED [None]
  - BLOOD PRESSURE DIASTOLIC INCREASED [None]
  - BLOOD UREA ABNORMAL [None]
  - BRAIN NATRIURETIC PEPTIDE INCREASED [None]
  - C-REACTIVE PROTEIN INCREASED [None]
  - CARDIAC FAILURE [None]
  - CHEST PAIN [None]
  - CHILLS [None]
  - CONGESTIVE CARDIOMYOPATHY [None]
  - COUGH [None]
  - DYSPNOEA [None]
  - DYSPNOEA PAROXYSMAL NOCTURNAL [None]
  - EJECTION FRACTION DECREASED [None]
  - ELECTROCARDIOGRAM P WAVE BIPHASIC [None]
  - GAMMA-GLUTAMYLTRANSFERASE INCREASED [None]
  - GOITRE [None]
  - HAEMOPTYSIS [None]
  - HOT FLUSH [None]
  - INFLUENZA LIKE ILLNESS [None]
  - PALPITATIONS [None]
  - PCO2 DECREASED [None]
  - PO2 DECREASED [None]
  - PROTEIN C DEFICIENCY [None]
  - PULMONARY EMBOLISM [None]
  - PULMONARY OEDEMA [None]
  - PYREXIA [None]
  - RALES [None]
  - SINUS TACHYCARDIA [None]
